FAERS Safety Report 5735185-8 (Version None)
Quarter: 2008Q2

REPORT INFORMATION
  Report Type: 
  Country: None (occurrence: None)
  Receive Date: 20080508
  Receipt Date: 20080508
  Transmission Date: 20081010
  Serious: Yes (Disabling)
  Sender: FDA-Public Use
  Company Number: None

PATIENT
  Age: 32 Year
  Sex: Female
  Weight: 63.5036 kg

DRUGS (1)
  1. CREST PRO HEALTH MOUTHWASH [Suspect]
     Indication: TOOTH DEPOSIT
     Dosage: 20 ML TWICE A DAY
     Dates: start: 20080325, end: 20080420

REACTIONS (3)
  - AGEUSIA [None]
  - STOMATITIS [None]
  - TOOTH DISCOLOURATION [None]
